FAERS Safety Report 4314867-9 (Version None)
Quarter: 2004Q1

REPORT INFORMATION
  Report Type: 
  Country: None (occurrence: None)
  Receive Date: 20040308
  Receipt Date: 20040226
  Transmission Date: 20041129
  Serious: Yes (Hospitalization)
  Sender: FDA-Public Use
  Company Number: TCI2004A00114

PATIENT
  Age: 70 Year
  Sex: Female

DRUGS (3)
  1. ACTOS [Suspect]
     Indication: DIABETES MELLITUS NON-INSULIN-DEPENDENT
     Dosage: (15 MG, 1 IN 1 D) PER ORAL
     Route: 048
     Dates: start: 20031128, end: 20031231
  2. VALSARTAN [Concomitant]
  3. SENNA LEAF [Concomitant]

REACTIONS (3)
  - PLEURAL EFFUSION [None]
  - RASH GENERALISED [None]
  - RASH MACULAR [None]
